FAERS Safety Report 11108242 (Version 1)
Quarter: 2015Q2

REPORT INFORMATION
  Report Type: Spontaneous
  Country: US (occurrence: US)
  Receive Date: 20150512
  Receipt Date: 20150512
  Transmission Date: 20150821
  Serious: Yes (Other)
  Sender: FDA-Public Use
  Company Number: US-RB-076828-15

PATIENT
  Sex: Female

DRUGS (1)
  1. MUCINEX DM [Suspect]
     Active Substance: DEXTROMETHORPHAN HYDROBROMIDE\GUAIFENESIN
     Indication: COUGH
     Dosage: AMOUNT USED: 1 TABLET
     Route: 065
     Dates: start: 20150419

REACTIONS (14)
  - Movement disorder [Recovering/Resolving]
  - Feeling cold [Recovering/Resolving]
  - Apparent death [Recovering/Resolving]
  - Abasia [Recovering/Resolving]
  - Aphasia [Recovering/Resolving]
  - Jaw disorder [Recovering/Resolving]
  - Palpitations [Recovering/Resolving]
  - Breast swelling [Recovering/Resolving]
  - Panic attack [Recovering/Resolving]
  - Burning sensation [Recovering/Resolving]
  - Psychomotor hyperactivity [Recovering/Resolving]
  - Tremor [Recovering/Resolving]
  - Eye disorder [Recovering/Resolving]
  - Hypertension [Recovering/Resolving]

NARRATIVE: CASE EVENT DATE: 201504
